FAERS Safety Report 6111857-0 (Version None)
Quarter: 2009Q1

REPORT INFORMATION
  Report Type: 
  Country: None (occurrence: None)
  Receive Date: 20090311
  Receipt Date: 20090302
  Transmission Date: 20090719
  Serious: Yes (Hospitalization)
  Sender: FDA-Public Use
  Company Number: SE-ASTRAZENECA-2009SE00997

PATIENT
  Sex: Male

DRUGS (1)
  1. PLENDIL [Suspect]
     Indication: HYPERTENSION
     Route: 048
     Dates: start: 20000101

REACTIONS (5)
  - CARDIOMEGALY [None]
  - LOCALISED OEDEMA [None]
  - OEDEMA GENITAL [None]
  - OEDEMA PERIPHERAL [None]
  - TRICUSPID VALVE DISEASE [None]
